FAERS Safety Report 4616396-1 (Version None)
Quarter: 2005Q1

REPORT INFORMATION
  Report Type: 
  Country: None (occurrence: None)
  Receive Date: 20050321
  Receipt Date: 20050307
  Transmission Date: 20050727
  Serious: Yes (Other)
  Sender: FDA-Public Use
  Company Number: S99-USA-00344-01

PATIENT
  Age: 48 Year
  Sex: Female

DRUGS (7)
  1. CELEXA [Suspect]
     Indication: BIPOLAR DISORDER
     Dosage: 10 MG QD PO
     Route: 048
     Dates: start: 19990208
  2. CELEXA [Suspect]
     Indication: DEPRESSION
     Dosage: 10 MG QD PO
     Route: 048
     Dates: start: 19990208
  3. CELEXA [Suspect]
     Indication: BIPOLAR DISORDER
     Dosage: 20 MG QD PO
     Route: 048
     Dates: end: 19990219
  4. CELEXA [Suspect]
     Indication: DEPRESSION
     Dosage: 20 MG QD PO
     Route: 048
     Dates: end: 19990219
  5. RITALIN [Concomitant]
  6. LITHIUM [Concomitant]
  7. KWELL (LINDANE) [Concomitant]

REACTIONS (3)
  - DRUG INEFFECTIVE [None]
  - LICE INFESTATION [None]
  - STEVENS-JOHNSON SYNDROME [None]
